FAERS Safety Report 4402828-0 (Version None)
Quarter: 2004Q3

REPORT INFORMATION
  Report Type: 
  Country: None (occurrence: None)
  Receive Date: 20040721
  Receipt Date: 20040707
  Transmission Date: 20050211
  Serious: Yes (Death, Life-Threatening, Hospitalization)
  Sender: FDA-Public Use
  Company Number: TR-BRISTOL-MYERS SQUIBB COMPANY-12645792

PATIENT
  Age: 40 Year
  Sex: Female
  Weight: 94 kg

DRUGS (4)
  1. IFOSFAMIDE [Suspect]
     Indication: PLEURAL MESOTHELIOMA MALIGNANT
     Dates: start: 20040618, end: 20040620
  2. MESNA [Suspect]
     Indication: PLEURAL MESOTHELIOMA MALIGNANT
     Dates: start: 20040618, end: 20040620
  3. FAMOTIDINE [Concomitant]
  4. ROFECOXIB [Concomitant]

REACTIONS (5)
  - CONFUSIONAL STATE [None]
  - FEBRILE NEUTROPENIA [None]
  - NEUROTOXICITY [None]
  - RENAL FAILURE ACUTE [None]
  - SEPSIS [None]
